FAERS Safety Report 10064875 (Version 3)
Quarter: 2014Q3

REPORT INFORMATION
  Report Type: Spontaneous
  Country: US (occurrence: None)
  Receive Date: 20140328
  Receipt Date: 20140926
  Transmission Date: 20150326
  Serious: No
  Sender: FDA-Public Use
  Company Number: 1000054446

PATIENT
  Age: 66 Year
  Sex: Female

DRUGS (5)
  1. DIGOXIN. [Concomitant]
     Active Substance: DIGOXIN
  2. LISINOPRIL. [Concomitant]
     Active Substance: LISINOPRIL
  3. LINZESS [Suspect]
     Active Substance: LINACLOTIDE
     Indication: CONSTIPATION
     Dates: start: 201402
  4. ATENOLOL. [Concomitant]
     Active Substance: ATENOLOL
  5. CLONIDINE. [Concomitant]
     Active Substance: CLONIDINE

REACTIONS (6)
  - Diarrhoea [None]
  - Irritable bowel syndrome [None]
  - Mucous stools [None]
  - Dyspepsia [None]
  - Abdominal distension [None]
  - Gastrooesophageal reflux disease [None]

NARRATIVE: CASE EVENT DATE: 201402
